FAERS Safety Report 9374008 (Version 1)
Quarter: 2013Q2

REPORT INFORMATION
  Report Type: Spontaneous
  Country: US (occurrence: None)
  Receive Date: 20130627
  Receipt Date: 20130627
  Transmission Date: 20140414
  Serious: Yes (Life-Threatening, Hospitalization)
  Sender: FDA-Public Use
  Company Number: None

PATIENT
  Age: 67 Year
  Sex: Male
  Weight: 80.2 kg

DRUGS (1)
  1. AZTREONAM [Suspect]
     Indication: UPPER RESPIRATORY TRACT INFECTION
     Dates: start: 20130409, end: 20130410

REACTIONS (2)
  - Angioedema [None]
  - Dyspnoea [None]
